FAERS Safety Report 8973560 (Version 1)
Quarter: 2012Q4

REPORT INFORMATION
  Report Type: 
  Country: US (occurrence: US)
  Receive Date: 20121218
  Receipt Date: 20121218
  Transmission Date: 20130627
  Serious: No
  Sender: FDA-Public Use
  Company Number: US-BRISTOL-MYERS SQUIBB COMPANY-16416497

PATIENT
  Age: 6 None
  Sex: Female

DRUGS (2)
  1. ABILIFY [Suspect]
     Indication: BIPOLAR DISORDER
     Dosage: 1 df= 10-20mg. duration: 3-4years
  2. CYMBALTA [Suspect]
     Indication: BIPOLAR DISORDER
     Dosage: 1 df= 60-90mg

REACTIONS (2)
  - Dyskinesia [Unknown]
  - Gait disturbance [Recovered/Resolved]
